FAERS Safety Report 5634563-5 (Version None)
Quarter: 2008Q2

REPORT INFORMATION
  Report Type: 
  Country: None (occurrence: None)
  Receive Date: 20080131
  Receipt Date: 20071114
  Transmission Date: 20081010
  Serious: No
  Sender: FDA-Public Use
  Company Number: 2007-US-000209

PATIENT
  Age: 10 Year
  Sex: Male
  Weight: 32.7 kg

DRUGS (1)
  1. INCRELEX [Suspect]
     Dosage: 2.6 MG, BID, SUBCUTANEOUS
     Route: 058
     Dates: start: 20070413, end: 20070416

REACTIONS (4)
  - HEADACHE [None]
  - NAUSEA [None]
  - OEDEMA PERIPHERAL [None]
  - VOMITING [None]
